FAERS Safety Report 10098607 (Version 3)
Quarter: 2014Q2

REPORT INFORMATION
  Report Type: Spontaneous
  Country: US (occurrence: US)
  Receive Date: 20140423
  Receipt Date: 20140430
  Transmission Date: 20141212
  Serious: Yes (Other)
  Sender: FDA-Public Use
  Company Number: US-PFIZER INC-2011151650

PATIENT
  Age: 37 Year
  Sex: Female

DRUGS (5)
  1. MORPHINE SULFATE [Suspect]
     Dosage: UNK
  2. KLONOPIN [Suspect]
     Dosage: UNK
  3. HYDROCODONE BITARTRATE [Concomitant]
     Dosage: UNK
  4. VICOPROFEN [Concomitant]
     Dosage: UNK
  5. FENTANYL [Concomitant]
     Dosage: UNK

REACTIONS (2)
  - Homicide [Unknown]
  - Drug abuse [Unknown]
